FAERS Safety Report 6843823-1 (Version None)
Quarter: 2010Q3

REPORT INFORMATION
  Report Type: 
  Country: None (occurrence: None)
  Receive Date: 20100714
  Receipt Date: 20100714
  Transmission Date: 20110219
  Serious: Yes (Hospitalization)
  Sender: FDA-Public Use
  Company Number: None

PATIENT
  Age: 82 Year
  Sex: Male
  Weight: 82.6 kg

DRUGS (1)
  1. FUROSEMIDE [Suspect]
     Indication: CARDIAC FAILURE CONGESTIVE
     Dosage: 60 MG BID PO
     Route: 048
     Dates: start: 20010529, end: 20100704

REACTIONS (3)
  - FALL [None]
  - HYPOVOLAEMIA [None]
  - POLYURIA [None]
